FAERS Safety Report 10378733 (Version 1)
Quarter: 2014Q3

REPORT INFORMATION
  Report Type: Spontaneous
  Country: US (occurrence: None)
  Receive Date: 20140811
  Receipt Date: 20140811
  Transmission Date: 20150326
  Serious: Yes (Disabling)
  Sender: FDA-Public Use
  Company Number: None

PATIENT
  Age: 34 Year
  Sex: Female
  Weight: 72.12 kg

DRUGS (1)
  1. DYSPORT [Suspect]
     Active Substance: ABOBOTULINUMTOXINA
     Indication: SKIN WRINKLING
     Route: 030

REACTIONS (11)
  - Asthenia [None]
  - Head discomfort [None]
  - Swelling face [None]
  - Nervousness [None]
  - Dry mouth [None]
  - Dyspnoea [None]
  - Neck pain [None]
  - Lymphadenopathy [None]
  - Headache [None]
  - Myalgia [None]
  - Feeling abnormal [None]

NARRATIVE: CASE EVENT DATE: 20140131
